FAERS Safety Report 20796036 (Version 1)
Quarter: 2022Q2

REPORT INFORMATION
  Report Type: Spontaneous
  Country: US (occurrence: US)
  Receive Date: 20220506
  Receipt Date: 20220506
  Transmission Date: 20220721
  Serious: No
  Sender: FDA-Public Use
  Company Number: US-PFIZER INC-2020518238

PATIENT
  Age: 66 Year
  Sex: Male

DRUGS (3)
  1. VFEND [Suspect]
     Active Substance: VORICONAZOLE
     Indication: Lung transplant
     Dosage: 50 MG
  2. VFEND [Suspect]
     Active Substance: VORICONAZOLE
     Indication: Liver transplant
     Dosage: 150 MG, 2X/DAY(150 MG Q12H(EVERY 12 HR))
  3. VFEND [Suspect]
     Active Substance: VORICONAZOLE
     Dosage: 250 MG, 2X/DAY (250MG Q12HR)
     Route: 048

REACTIONS (2)
  - Drug level below therapeutic [Unknown]
  - Off label use [Unknown]
